FAERS Safety Report 6208017-1 (Version None)
Quarter: 2009Q2

REPORT INFORMATION
  Report Type: 
  Country: None (occurrence: None)
  Receive Date: 20090529
  Receipt Date: 20090518
  Transmission Date: 20091009
  Serious: Yes (Life-Threatening, Hospitalization)
  Sender: FDA-Public Use
  Company Number: DE-RANBAXY-2009RR-22332

PATIENT
  Age: 70 Year
  Sex: Female
  Weight: 77 kg

DRUGS (6)
  1. VERAPAMIL [Suspect]
     Indication: ATRIAL FIBRILLATION
     Dosage: 120 MG, BID
     Route: 048
  2. ASPIRIN [Suspect]
     Indication: POLYCYTHAEMIA
     Dosage: UNK
     Route: 048
     Dates: end: 20080213
  3. FURORESE [Concomitant]
     Indication: HYPERTENSION
     Dosage: 40 MG, QD
     Route: 048
  4. LEVOTHYROXINE SODIUM [Concomitant]
     Indication: THYROIDECTOMY
     Dosage: 75 UG, QD
     Route: 048
  5. HYDROXYUREA [Concomitant]
     Indication: POLYCYTHAEMIA
     Dosage: 500 MG, QD
     Route: 048
  6. PANTOZOL [Concomitant]
     Indication: PROPHYLAXIS AGAINST GASTROINTESTINAL ULCER
     Dosage: 40 MG, QD
     Route: 048

REACTIONS (2)
  - DRUG INTERACTION [None]
  - GASTROINTESTINAL HAEMORRHAGE [None]
